FAERS Safety Report 15681314 (Version 1)
Quarter: 2018Q4

REPORT INFORMATION
  Report Type: Spontaneous
  Country: IT (occurrence: IT)
  Receive Date: 20181203
  Receipt Date: 20181203
  Transmission Date: 20190205
  Serious: Yes (Other)
  Sender: FDA-Public Use
  Company Number: IT-SA-2018SA323907

PATIENT
  Age: 69 Year
  Sex: Female
  Weight: 56 kg

DRUGS (7)
  1. FLUOROURACIL. [Suspect]
     Active Substance: FLUOROURACIL
     Indication: ADENOCARCINOMA GASTRIC
     Dosage: 628 MG, QCY
     Route: 040
     Dates: start: 20180226, end: 20180226
  2. OXALIPLATIN. [Suspect]
     Active Substance: OXALIPLATIN
     Indication: ADENOCARCINOMA GASTRIC
     Dosage: 130 MG, QCY
     Route: 042
     Dates: start: 20180226, end: 20180226
  3. TRASTUZUMAB. [Suspect]
     Active Substance: TRASTUZUMAB
     Dosage: 224 MG, QCY
     Route: 042
     Dates: start: 20180226, end: 20180226
  4. TRASTUZUMAB. [Suspect]
     Active Substance: TRASTUZUMAB
     Dosage: 224 UNK
     Route: 042
     Dates: start: 20181001, end: 20181001
  5. FLUOROURACIL. [Suspect]
     Active Substance: FLUOROURACIL
     Dosage: 3768 UNK
     Route: 042
     Dates: start: 20181001, end: 20181001
  6. LEVOLEUCOVORIN [LEVOFOLINIC ACID] [Concomitant]
     Indication: ADENOCARCINOMA GASTRIC
     Route: 042
     Dates: start: 20180226, end: 20181001
  7. OXALIPLATIN. [Suspect]
     Active Substance: OXALIPLATIN
     Dosage: 130 MG, QCY
     Route: 042
     Dates: start: 20180827, end: 20180827

REACTIONS (2)
  - Arrhythmia [Recovering/Resolving]
  - Extrasystoles [Recovering/Resolving]

NARRATIVE: CASE EVENT DATE: 20180326
